FAERS Safety Report 11414736 (Version 1)
Quarter: 2015Q3

REPORT INFORMATION
  Report Type: Spontaneous
  Country: CA (occurrence: CA)
  Receive Date: 20150825
  Receipt Date: 20150825
  Transmission Date: 20151125
  Serious: Yes (Other)
  Sender: FDA-Public Use
  Company Number: CA-ROCHE-1623084

PATIENT
  Age: 45 Year
  Sex: Male

DRUGS (3)
  1. XELODA [Suspect]
     Active Substance: CAPECITABINE
     Indication: PRODUCT USED FOR UNKNOWN INDICATION
     Route: 065
  2. ELOXATIN [Suspect]
     Active Substance: OXALIPLATIN
     Indication: PRODUCT USED FOR UNKNOWN INDICATION
     Route: 042
  3. AVASTIN [Suspect]
     Active Substance: BEVACIZUMAB
     Indication: COLON CANCER METASTATIC
     Route: 065

REACTIONS (11)
  - Infection [Unknown]
  - Muscle spasms [Unknown]
  - Thrombosis [Unknown]
  - Chromaturia [Unknown]
  - Fatigue [Unknown]
  - Liver disorder [Unknown]
  - Tenderness [Unknown]
  - Blood bilirubin increased [Unknown]
  - Extravasation [Unknown]
  - Injection site erythema [Unknown]
  - Swelling [Unknown]
